FAERS Safety Report 17036912 (Version 1)
Quarter: 2019Q4

REPORT INFORMATION
  Report Type: Spontaneous
  Country: US (occurrence: US)
  Receive Date: 20191115
  Receipt Date: 20191115
  Transmission Date: 20200122
  Serious: Yes (Life-Threatening)
  Sender: FDA-Public Use
  Company Number: US-PFIZER INC-2019489198

PATIENT
  Age: 40 Year
  Sex: Female

DRUGS (9)
  1. OXYTOCIN. [Suspect]
     Active Substance: OXYTOCIN
     Indication: LABOUR INDUCTION
     Dosage: UNK
  2. OXYTOCIN. [Suspect]
     Active Substance: OXYTOCIN
     Dosage: UNK (INCREMENTAL INCREASES)
  3. MAGNESIUM SULFATE. [Concomitant]
     Active Substance: MAGNESIUM SULFATE
     Indication: SEIZURE PROPHYLAXIS
     Dosage: UNK
  4. OXYTOCIN. [Suspect]
     Active Substance: OXYTOCIN
     Dosage: UNK (OXYTOCIN WAS APPROPRIATELY TITRATED)
  5. TERBUTALINE SULFATE. [Concomitant]
     Active Substance: TERBUTALINE SULFATE
     Indication: EXTERNAL CEPHALIC VERSION
     Dosage: UNK
  6. HYDRALAZINE [Concomitant]
     Active Substance: HYDRALAZINE HYDROCHLORIDE
     Indication: BLOOD PRESSURE ABNORMAL
     Dosage: UNK
     Route: 042
  7. MISOPROSTOL. [Suspect]
     Active Substance: MISOPROSTOL
     Indication: CERVICAL DILATATION
     Dosage: UNK (2 TIMED DOSES)
  8. MISOPROSTOL. [Suspect]
     Active Substance: MISOPROSTOL
     Indication: LABOUR INDUCTION
  9. LABETALOL [Concomitant]
     Active Substance: LABETALOL\LABETALOL HYDROCHLORIDE
     Indication: BLOOD PRESSURE ABNORMAL
     Dosage: UNK
     Route: 042

REACTIONS (3)
  - Off label use [Unknown]
  - Product use in unapproved indication [Unknown]
  - Uterine rupture [Unknown]
